FAERS Safety Report 15318064 (Version 1)
Quarter: 2018Q3

REPORT INFORMATION
  Report Type: Spontaneous
  Country: US (occurrence: US)
  Receive Date: 20180817
  Receipt Date: 20180817
  Transmission Date: 20181010
  Serious: No
  Sender: FDA-Public Use
  Company Number: None

PATIENT
  Age: 42 Year
  Sex: Female
  Weight: 94.5 kg

DRUGS (4)
  1. METHYLPREDNISOLONE DOSE PAKE 4MG GREE [Suspect]
     Active Substance: METHYLPREDNISOLONE
     Indication: SINUSITIS
     Dosage: ?          QUANTITY:21 TABLET(S);OTHER FREQUENCY:BLISTER PACK;?
     Route: 048
     Dates: start: 20180816, end: 20180817
  2. BELSOMRA [Concomitant]
     Active Substance: SUVOREXANT
  3. SKELAXIN [Concomitant]
     Active Substance: METAXALONE
  4. LYRICA [Concomitant]
     Active Substance: PREGABALIN

REACTIONS (2)
  - Chest pain [None]
  - Flushing [None]

NARRATIVE: CASE EVENT DATE: 20180817
